FAERS Safety Report 4618581-1 (Version None)
Quarter: 2005Q1

REPORT INFORMATION
  Report Type: 
  Country: None (occurrence: None)
  Receive Date: 20050324
  Receipt Date: 20050310
  Transmission Date: 20050727
  Serious: Yes (Hospitalization)
  Sender: FDA-Public Use
  Company Number: CERZ-10799

PATIENT
  Age: 57 Year
  Sex: Female
  Weight: 72.9 kg

DRUGS (5)
  1. CEREZYME [Suspect]
     Indication: GAUCHER'S DISEASE
     Dosage: 1600 UNITS Q2WKS IV
     Route: 042
     Dates: start: 19970508
  2. CELEXA [Concomitant]
  3. LISINOPRIL AND HYDROCHLOROTHIAZIDE [Concomitant]
  4. CLONIDINE [Concomitant]
  5. MULTIVITAMIN W/CALCIUM [Concomitant]

REACTIONS (2)
  - ARTHRALGIA [None]
  - MEDICAL DEVICE COMPLICATION [None]
